FAERS Safety Report 10489450 (Version 1)
Quarter: 2014Q3

REPORT INFORMATION
  Report Type: Spontaneous
  Country: US (occurrence: None)
  Receive Date: 20140815
  Receipt Date: 20140815
  Transmission Date: 20150326
  Serious: Yes (Other)
  Sender: FDA-Public Use
  Company Number: ADR-2014-01037

PATIENT
  Sex: Male

DRUGS (2)
  1. COMPOUNDED BACLOFEN INTRATHECAL [Suspect]
     Active Substance: BACLOFEN
     Indication: PAIN
  2. HYDROMORPHONE [Suspect]
     Active Substance: HYDROMORPHONE

REACTIONS (2)
  - Implant site infection [None]
  - Implant site extravasation [None]
